FAERS Safety Report 10553049 (Version 1)
Quarter: 2014Q4

REPORT INFORMATION
  Report Type: Spontaneous
  Country: IN (occurrence: IN)
  Receive Date: 20141029
  Receipt Date: 20141029
  Transmission Date: 20150529
  Serious: Yes (Other)
  Sender: FDA-Public Use
  Company Number: IN-BAXTER-2014BAX063499

PATIENT
  Age: 3 Year
  Weight: 11 kg

DRUGS (6)
  1. OXYGEN. [Suspect]
     Active Substance: OXYGEN
     Indication: INDUCTION OF ANAESTHESIA
     Route: 055
  2. SUXAMETHONIUM [Suspect]
     Active Substance: SUCCINYLCHOLINE
     Indication: ANAESTHESIA PROCEDURE
     Route: 042
  3. SEVOFLURANE LIQUID FOR INHALATION [Suspect]
     Active Substance: SEVOFLURANE
     Indication: INDUCTION OF ANAESTHESIA
     Route: 065
  4. ATRACURIUM [Suspect]
     Active Substance: ATRACURIUM
     Indication: MAINTENANCE OF ANAESTHESIA
     Route: 042
  5. BUPIVACAINE [Suspect]
     Active Substance: BUPIVACAINE
     Indication: ANAESTHESIA PROCEDURE
     Route: 065
  6. NITROUS OXIDE. [Suspect]
     Active Substance: NITROUS OXIDE
     Indication: INDUCTION OF ANAESTHESIA
     Route: 065

REACTIONS (1)
  - Cardiotoxicity [Recovered/Resolved]
